FAERS Safety Report 23101502 (Version 3)
Quarter: 2023Q4

REPORT INFORMATION
  Report Type: Spontaneous
  Country: JP (occurrence: JP)
  Receive Date: 20231024
  Receipt Date: 20231227
  Transmission Date: 20240110
  Serious: Yes (Death, Other)
  Sender: FDA-Public Use
  Company Number: JP-SAKK-2023SA325542AA

PATIENT
  Age: 71 Year
  Sex: Female

DRUGS (1)
  1. RASBURICASE [Suspect]
     Active Substance: RASBURICASE
     Indication: Premedication
     Dosage: 0.2 MG/KG, QD
     Route: 041

REACTIONS (3)
  - Anaphylactic reaction [Fatal]
  - Distributive shock [Fatal]
  - Cardiac arrest [Fatal]
